FAERS Safety Report 6669422-2 (Version None)
Quarter: 2010Q2

REPORT INFORMATION
  Report Type: 
  Country: None (occurrence: None)
  Receive Date: 20100406
  Receipt Date: 20100325
  Transmission Date: 20101027
  Serious: Yes (Disabling, Other)
  Sender: FDA-Public Use
  Company Number: AU-WYE-G05834310

PATIENT
  Sex: Female

DRUGS (1)
  1. EFFEXOR XR [Suspect]
     Dosage: 75MG FOR TWO YEARS, THEN WEANING OFF THE LAST WEEK AT 75MG EVERY SECOND DAY

REACTIONS (7)
  - ASTHENOPIA [None]
  - BEDRIDDEN [None]
  - DIZZINESS [None]
  - DRUG WITHDRAWAL SYNDROME [None]
  - MALAISE [None]
  - MEMORY IMPAIRMENT [None]
  - NIGHTMARE [None]
